FAERS Safety Report 8958277 (Version 1)
Quarter: 2012Q4

REPORT INFORMATION
  Report Type: 
  Country: US (occurrence: US)
  Receive Date: 20121211
  Receipt Date: 20121211
  Transmission Date: 20130627
  Serious: No
  Sender: FDA-Public Use
  Company Number: US-ASTRAZENECA-2012SE89836

PATIENT
  Age: 63 Year
  Sex: Female

DRUGS (4)
  1. SEROQUEL [Suspect]
     Indication: SLEEP DISORDER
     Route: 048
     Dates: start: 2009
  2. SEROQUEL [Suspect]
     Indication: ANXIETY
     Route: 048
     Dates: start: 2009
  3. MELATONIN [Concomitant]
  4. BP MED [Concomitant]

REACTIONS (3)
  - Hypertension [Unknown]
  - Intentional drug misuse [Unknown]
  - Off label use [Unknown]
